FAERS Safety Report 6738120-9 (Version None)
Quarter: 2010Q2

REPORT INFORMATION
  Report Type: 
  Country: None (occurrence: None)
  Receive Date: 20100524
  Receipt Date: 20100513
  Transmission Date: 20101027
  Serious: Yes (Other)
  Sender: FDA-Public Use
  Company Number: US-JNJFOC-20100506991

PATIENT

DRUGS (2)
  1. REMICADE [Suspect]
     Indication: CROHN'S DISEASE
     Dosage: 3 INDUCTION DOSES AT 0, 2 AND 6 WEEKS (DATES NOT PROVIDED)
     Route: 042
  2. REMICADE [Suspect]
     Dosage: FOURTH INFUSION, AT 14 WEEKS
     Route: 042

REACTIONS (1)
  - GASTROINTESTINAL PERFORATION [None]
